FAERS Safety Report 5657665-6 (Version None)
Quarter: 2008Q1

REPORT INFORMATION
  Report Type: 
  Country: None (occurrence: None)
  Receive Date: 20080310
  Receipt Date: 20080303
  Transmission Date: 20080703
  Serious: Yes (Other)
  Sender: FDA-Public Use
  Company Number: PHEH2008US01881

PATIENT
  Age: 47 Year
  Sex: Male
  Weight: 109.75 kg

DRUGS (3)
  1. TEGRETOL [Suspect]
     Indication: SCHIZOPHRENIA
     Dosage: 200 MG, BID
     Route: 048
     Dates: start: 20080213, end: 20080214
  2. PROPRANOLOL [Concomitant]
     Indication: SCHIZOPHRENIA
     Dosage: 30 MG, BID
     Route: 048
     Dates: start: 20060426
  3. SEROQUEL [Concomitant]
     Indication: SCHIZOPHRENIA
     Dosage: 200 MG QAM, 200MG Q5PM, 600MG HS
     Route: 048
     Dates: start: 20060516

REACTIONS (2)
  - ANAPHYLACTIC REACTION [None]
  - THROAT TIGHTNESS [None]
